FAERS Safety Report 19026076 (Version 3)
Quarter: 2021Q2

REPORT INFORMATION
  Report Type: Spontaneous
  Country: DE (occurrence: DE)
  Receive Date: 20210318
  Receipt Date: 20210614
  Transmission Date: 20210717
  Serious: Yes (Other)
  Sender: FDA-Public Use
  Company Number: NVSC2021DE053435

PATIENT
  Age: 56 Year
  Sex: Female
  Weight: 68 kg

DRUGS (18)
  1. MYOPRIDIN [Concomitant]
     Indication: PRODUCT USED FOR UNKNOWN INDICATION
     Dosage: UNK
     Route: 065
  2. CETIXIN [Concomitant]
     Indication: PREMEDICATION
     Dosage: 10 MG,6 MONTH
     Route: 048
     Dates: start: 20180730
  3. DEXAMETHASONE. [Suspect]
     Active Substance: DEXAMETHASONE
     Indication: PRIMARY PROGRESSIVE MULTIPLE SCLEROSIS
     Dosage: 100 MG (FORMULATION:INFUSION, SOLUTION)
     Route: 042
     Dates: start: 20180730
  4. DEXAMETHASONE. [Suspect]
     Active Substance: DEXAMETHASONE
     Indication: PREMEDICATION
     Dosage: 100 MG
     Route: 042
     Dates: start: 20180813
  5. OCRELIZUMAB. [Suspect]
     Active Substance: OCRELIZUMAB
     Dosage: 600 MG, 6 MONTHS
     Route: 042
     Dates: start: 20190211
  6. OCRELIZUMAB. [Suspect]
     Active Substance: OCRELIZUMAB
     Dosage: 600 MG, 6 MONTHS
     Route: 042
     Dates: start: 20210208
  7. METHYLPREDNISOLONE. [Concomitant]
     Active Substance: METHYLPREDNISOLONE
     Indication: PRODUCT USED FOR UNKNOWN INDICATION
     Dosage: 100MG, 6 MONTHS
     Route: 042
  8. DEXAMETHASONE. [Suspect]
     Active Substance: DEXAMETHASONE
     Dosage: 100 MG
     Route: 042
     Dates: start: 202008
  9. DEXAMETHASONE. [Suspect]
     Active Substance: DEXAMETHASONE
     Dosage: 100 MG
     Route: 042
     Dates: start: 20210208, end: 20210208
  10. OCRELIZUMAB. [Suspect]
     Active Substance: OCRELIZUMAB
     Dosage: 300 MG BIW
     Route: 042
     Dates: start: 20180813
  11. FENISTIL [Concomitant]
     Active Substance: DIMETHINDENE
     Indication: PRODUCT USED FOR UNKNOWN INDICATION
     Dosage: UNK (TREATMENT DATE: 13/AUG/2018, /AUG/2020 AND 08/FEB/2021)
     Route: 042
     Dates: start: 20180730
  12. OCRELIZUMAB. [Suspect]
     Active Substance: OCRELIZUMAB
     Indication: PRIMARY PROGRESSIVE MULTIPLE SCLEROSIS
     Dosage: 300 MG,6 MONTH
     Route: 042
     Dates: start: 20180730, end: 20180813
  13. LENZETTO [Concomitant]
     Active Substance: ESTRADIOL
     Indication: OESTROGEN DEFICIENCY
     Dosage: 1.53 MG,QD
     Route: 048
  14. FAMPYRA [Concomitant]
     Active Substance: DALFAMPRIDINE
     Indication: PRODUCT USED FOR UNKNOWN INDICATION
     Dosage: UNK
     Route: 065
  15. METHYLPREDNISOLONE. [Concomitant]
     Active Substance: METHYLPREDNISOLONE
     Dosage: 100 MG, BIW
     Route: 042
     Dates: start: 20180730
  16. CETIXIN [Concomitant]
     Dosage: UNK
     Route: 065
  17. OCRELIZUMAB. [Suspect]
     Active Substance: OCRELIZUMAB
     Dosage: 600 MG, 6 MONTHS
     Route: 042
     Dates: start: 202008
  18. NOVOTHYRAL [Concomitant]
     Active Substance: LEVOTHYROXINE SODIUM\LIOTHYRONINE SODIUM
     Indication: HYPOTHYROIDISM
     Dosage: 75UG
     Route: 048

REACTIONS (26)
  - Headache [Not Recovered/Not Resolved]
  - Multiple sclerosis [Unknown]
  - Erythema [Recovered/Resolved]
  - Disturbance in attention [Recovered/Resolved]
  - Swelling face [Recovered/Resolved]
  - Dizziness [Recovered/Resolved]
  - Myalgia [Recovered/Resolved]
  - Hyperhidrosis [Recovered/Resolved]
  - Nasopharyngitis [Recovered/Resolved]
  - Muscular weakness [Not Recovered/Not Resolved]
  - Visual impairment [Recovered/Resolved]
  - Asthenia [Recovered/Resolved]
  - Heart rate increased [Recovered/Resolved]
  - Sleep disorder [Recovered/Resolved]
  - Fatigue [Not Recovered/Not Resolved]
  - Tremor [Recovered/Resolved]
  - Paraesthesia [Recovered/Resolved]
  - Throat irritation [Recovered/Resolved]
  - Palpitations [Not Recovered/Not Resolved]
  - Abdominal discomfort [Not Recovered/Not Resolved]
  - Product prescribing error [Unknown]
  - Fatigue [Recovered/Resolved]
  - Secretion discharge [Recovered/Resolved]
  - Burning sensation [Recovered/Resolved]
  - Gait disturbance [Unknown]
  - Product administration error [Unknown]

NARRATIVE: CASE EVENT DATE: 202102
